FAERS Safety Report 20562434 (Version 1)
Quarter: 2022Q1

REPORT INFORMATION
  Report Type: Spontaneous
  Country: US (occurrence: US)
  Receive Date: 20220307
  Receipt Date: 20220307
  Transmission Date: 20220423
  Serious: No
  Sender: FDA-Public Use
  Company Number: US-PFIZER INC-2021863949

PATIENT
  Age: 58 Year
  Sex: Female

DRUGS (1)
  1. XELJANZ [Suspect]
     Active Substance: TOFACITINIB CITRATE
     Dosage: 5 MG
     Dates: start: 20210601

REACTIONS (5)
  - Alopecia [Unknown]
  - Feeling abnormal [Unknown]
  - Weight increased [Unknown]
  - Swelling face [Unknown]
  - Constipation [Unknown]

NARRATIVE: CASE EVENT DATE: 20210707
